FAERS Safety Report 4868206-5 (Version None)
Quarter: 2005Q4

REPORT INFORMATION
  Report Type: 
  Country: None (occurrence: None)
  Receive Date: 20051223
  Receipt Date: 20051213
  Transmission Date: 20060501
  Serious: Yes (Death, Hospitalization)
  Sender: FDA-Public Use
  Company Number: 217400

PATIENT
  Age: 51 Year
  Sex: Female

DRUGS (3)
  1. AVASTIN [Suspect]
     Indication: METASTATIC RENAL CELL CARCINOMA
     Dosage: 10 MG/KG Q2W INTRAVENOUS
     Route: 042
     Dates: start: 20050720
  2. GEMCITABINE (GEMCITABINE HYDROCHLORIDE) [Suspect]
     Indication: METASTATIC RENAL CELL CARCINOMA
     Dates: end: 20050817
  3. CAPECITABINE (CAPECITABINE) [Suspect]
     Indication: METASTATIC RENAL CELL CARCINOMA
     Dates: end: 20050817

REACTIONS (11)
  - GASTROINTESTINAL PERFORATION [None]
  - MENTAL STATUS CHANGES [None]
  - METASTATIC NEOPLASM [None]
  - MULTI-ORGAN FAILURE [None]
  - NODULE [None]
  - PLEURAL EFFUSION [None]
  - PULMONARY EMBOLISM [None]
  - PULMONARY OEDEMA [None]
  - SEPTIC SHOCK [None]
  - SEROSITIS [None]
  - SMALL INTESTINAL PERFORATION [None]
